FAERS Safety Report 9361988 (Version 1)
Quarter: 2013Q2

REPORT INFORMATION
  Report Type: Spontaneous
  Country: FR (occurrence: FR)
  Receive Date: 20130621
  Receipt Date: 20130621
  Transmission Date: 20140414
  Serious: Yes (Hospitalization)
  Sender: FDA-Public Use
  Company Number: FR-PFIZER INC-2013180235

PATIENT
  Age: 58 Year
  Sex: Male

DRUGS (13)
  1. ZYVOXID [Suspect]
     Indication: PNEUMONIA PNEUMOCOCCAL
     Dosage: 600 MG, DAILY
     Dates: start: 20121219, end: 20130102
  2. ROCEPHINE [Suspect]
     Indication: PNEUMONIA PNEUMOCOCCAL
     Dosage: 2 G, DAILY
     Route: 042
     Dates: start: 20121218, end: 20130102
  3. LASILIX [Concomitant]
     Dosage: 40 MG, UNK
  4. TAHOR [Concomitant]
     Dosage: 40 MG, UNK
  5. DUPHALAC [Concomitant]
  6. TEMERIT [Concomitant]
     Dosage: 5 MG, UNK
  7. MONO-TILDIEM LP [Concomitant]
     Dosage: 200 MG, UNK
  8. TOPALGIC [Concomitant]
     Dosage: UNK
  9. INEXIUM [Concomitant]
     Dosage: 20 MG, UNK
  10. ATARAX [Concomitant]
     Dosage: 25 MG, UNK
  11. FLUCONAZOLE [Concomitant]
     Indication: INTERTRIGO
     Dosage: UNK
     Route: 061
     Dates: start: 20121231
  12. BIFONAZOLE [Concomitant]
     Indication: INTERTRIGO
     Dosage: UNK
     Route: 061
     Dates: start: 20121231
  13. SPIRAMYCIN [Concomitant]
     Indication: PNEUMONIA PNEUMOCOCCAL
     Dosage: UNK
     Dates: start: 20121218

REACTIONS (1)
  - Acute generalised exanthematous pustulosis [Recovered/Resolved]
